FAERS Safety Report 25758318 (Version 2)
Quarter: 2025Q3

REPORT INFORMATION
  Report Type: Spontaneous
  Country: EU (occurrence: EU)
  Receive Date: 20250904
  Receipt Date: 20250922
  Transmission Date: 20251020
  Serious: Yes (Life-Threatening, Hospitalization, Other)
  Sender: TAKEDA
  Company Number: EU-IGSA-BIG0037523

PATIENT
  Age: 11 Year
  Sex: Female

DRUGS (4)
  1. HUMAN IMMUNOGLOBULIN G [Suspect]
     Active Substance: HUMAN IMMUNOGLOBULIN G
     Indication: Multisystem inflammatory syndrome in children
  2. HUMAN IMMUNOGLOBULIN G [Suspect]
     Active Substance: HUMAN IMMUNOGLOBULIN G
     Indication: Off label use
  3. METHYLPREDNISOLONE [Suspect]
     Active Substance: METHYLPREDNISOLONE
     Indication: Multisystem inflammatory syndrome in children
     Dosage: 2 MILLIGRAM/KILOGRAM, QD
  4. METHYLPREDNISOLONE [Suspect]
     Active Substance: METHYLPREDNISOLONE
     Indication: Off label use

REACTIONS (7)
  - Transfusion-related acute lung injury [Recovered/Resolved]
  - Hypoxia [Recovered/Resolved]
  - Acute respiratory distress syndrome [Unknown]
  - Lung infiltration [Unknown]
  - Off label use [Unknown]
  - Respiratory failure [Recovered/Resolved]
  - Respiratory distress [Recovered/Resolved]
